FAERS Safety Report 6461069-6 (Version None)
Quarter: 2009Q4

REPORT INFORMATION
  Report Type: 
  Country: None (occurrence: None)
  Receive Date: 20091130
  Receipt Date: 20091119
  Transmission Date: 20100525
  Serious: Yes (Hospitalization)
  Sender: FDA-Public Use
  Company Number: B0606089A

PATIENT
  Sex: Female

DRUGS (5)
  1. ALKERAN [Suspect]
     Route: 042
     Dates: start: 20001001, end: 20001001
  2. BUSULFAN [Suspect]
     Route: 065
     Dates: start: 20001001, end: 20001001
  3. ZAVEDOS [Suspect]
     Route: 065
     Dates: start: 20000701, end: 20000701
  4. ARACYTINE [Suspect]
     Route: 042
     Dates: start: 20000701, end: 20000701
  5. AUTOGRAFT OF PERIPHERAL BLOOD STEM CELLS [Concomitant]
     Dates: start: 20001001, end: 20001001

REACTIONS (2)
  - ACUTE LEUKAEMIA [None]
  - PANCYTOPENIA [None]
